FAERS Safety Report 5676425-3 (Version None)
Quarter: 2008Q1

REPORT INFORMATION
  Report Type: 
  Country: None (occurrence: None)
  Receive Date: 20080321
  Receipt Date: 20080314
  Transmission Date: 20080703
  Serious: Yes (Life-Threatening)
  Sender: FDA-Public Use
  Company Number: US-GENENTECH-257696

PATIENT
  Weight: 86.5 kg

DRUGS (1)
  1. BEVACIZUMAB [Suspect]
     Indication: MESOTHELIOMA
     Dosage: 970 MG, Q3W
     Route: 042
     Dates: start: 20080220

REACTIONS (1)
  - HYPERSENSITIVITY [None]
